FAERS Safety Report 6813800-5 (Version None)
Quarter: 2010Q3

REPORT INFORMATION
  Report Type: 
  Country: None (occurrence: None)
  Receive Date: 20100702
  Receipt Date: 20100506
  Transmission Date: 20110219
  Serious: Yes (Hospitalization)
  Sender: FDA-Public Use
  Company Number: US-RANBAXY-2010US-32049

PATIENT

DRUGS (4)
  1. ISOPTIN SR [Suspect]
     Indication: ATRIAL FIBRILLATION
     Dosage: 120 MG, 1 IN 1 D
     Route: 048
     Dates: start: 20091218, end: 20100202
  2. METOPROLOL SUCCINATE [Concomitant]
     Indication: PRODUCT USED FOR UNKNOWN INDICATION
     Dosage: 200 MG, UNK
     Route: 065
  3. ACETYLSALICYLIC ACID [Concomitant]
     Indication: PRODUCT USED FOR UNKNOWN INDICATION
     Dosage: 160 MG, UNK
     Route: 065
  4. DIGOXIN [Concomitant]
     Indication: PRODUCT USED FOR UNKNOWN INDICATION
     Dosage: UNK

REACTIONS (3)
  - ANGIOEDEMA [None]
  - OFF LABEL USE [None]
  - OROPHARYNGEAL SWELLING [None]
